FAERS Safety Report 14376541 (Version 2)
Quarter: 2025Q1

REPORT INFORMATION
  Report Type: Spontaneous
  Country: SE (occurrence: SE)
  Receive Date: 20180111
  Receipt Date: 20250129
  Transmission Date: 20250408
  Serious: Yes (Other)
  Sender: PFIZER
  Company Number: SE-PFIZER INC-2018010835

PATIENT
  Age: 37 Year
  Sex: Female

DRUGS (1)
  1. CYTOTEC [Suspect]
     Active Substance: MISOPROSTOL
     Indication: Labour induction
     Dates: end: 20151025

REACTIONS (5)
  - Cervical dysplasia [Unknown]
  - Tremor [Unknown]
  - Abnormal labour [Unknown]
  - Pelvic discomfort [Unknown]
  - Off label use [Unknown]
